FAERS Safety Report 16424595 (Version 1)
Quarter: 2019Q2

REPORT INFORMATION
  Report Type: Report from Study
  Country: IT (occurrence: IT)
  Receive Date: 20190613
  Receipt Date: 20190613
  Transmission Date: 20190711
  Serious: Yes (Hospitalization)
  Sender: FDA-Public Use
  Company Number: IT-ACCORD-132850

PATIENT
  Age: 22 Year
  Sex: Female

DRUGS (4)
  1. VALDORM (FLURAZEPAM HYDROCHLORIDE) [Suspect]
     Active Substance: FLURAZEPAM HYDROCHLORIDE
     Dosage: STRENGTH 30 MG
     Route: 048
     Dates: start: 20190128, end: 20190128
  2. LORAZEPAM. [Suspect]
     Active Substance: LORAZEPAM
     Route: 048
     Dates: start: 20190128, end: 20190128
  3. CLOZAPINE. [Suspect]
     Active Substance: CLOZAPINE
     Route: 048
     Dates: start: 20190128, end: 20190128
  4. BISOPROLOL [Suspect]
     Active Substance: BISOPROLOL
     Route: 048
     Dates: start: 20190128, end: 20190128

REACTIONS (4)
  - Hypokinesia [Recovered/Resolved]
  - Bradyphrenia [Recovered/Resolved]
  - Drug abuse [Unknown]
  - Sopor [Recovered/Resolved]

NARRATIVE: CASE EVENT DATE: 20190129
